FAERS Safety Report 8394612-0 (Version None)
Quarter: 2012Q2

REPORT INFORMATION
  Report Type: 
  Country: None (occurrence: None)
  Receive Date: 20120525
  Receipt Date: 20120525
  Transmission Date: 20120825
  Serious: Yes (Life-Threatening, Hospitalization)
  Sender: FDA-Public Use
  Company Number: None

PATIENT
  Age: 61 Year
  Sex: Male
  Weight: 92.5 kg

DRUGS (2)
  1. DOXORUBICIN HCL [Suspect]
     Indication: METASTASES TO LIVER
     Dosage: HCC OR LIVER METATASES
     Dates: start: 20111114
  2. NEXAVAR [Suspect]
     Indication: HEPATIC NEOPLASM MALIGNANT
     Dosage: 2-200MG TWICE DAILY PO
     Route: 048
     Dates: start: 20111107

REACTIONS (11)
  - ABDOMINAL DISCOMFORT [None]
  - BLOOD LACTIC ACID INCREASED [None]
  - VASCULAR INJURY [None]
  - PERITONEAL HAEMORRHAGE [None]
  - FALL [None]
  - HAEMOGLOBIN DECREASED [None]
  - ABDOMINAL COMPARTMENT SYNDROME [None]
  - HYPOTENSION [None]
  - CONVULSION [None]
  - TUMOUR RUPTURE [None]
  - TUMOUR NECROSIS [None]
